FAERS Safety Report 9473037 (Version 2)
Quarter: 2013Q3

REPORT INFORMATION
  Report Type: Spontaneous
  Country: US (occurrence: US)
  Receive Date: 20130823
  Receipt Date: 20130823
  Transmission Date: 20140515
  Serious: No
  Sender: FDA-Public Use
  Company Number: US-BRISTOL-MYERS SQUIBB COMPANY-17355058

PATIENT
  Age: 64 Year
  Sex: Male

DRUGS (4)
  1. SPRYCEL (CML) TABS 100 MG [Suspect]
     Indication: CHRONIC MYELOID LEUKAEMIA
     Dates: start: 20121204
  2. POTASSIUM [Concomitant]
  3. LYRICA [Concomitant]
     Indication: DIABETIC NEUROPATHY
  4. METFORMIN [Concomitant]
     Indication: DIABETES MELLITUS

REACTIONS (6)
  - Headache [Recovering/Resolving]
  - Nausea [Unknown]
  - Rash [Recovering/Resolving]
  - Photosensitivity reaction [Unknown]
  - Dyspnoea [Unknown]
  - Pleural effusion [Unknown]
